FAERS Safety Report 16871681 (Version 1)
Quarter: 2019Q4

REPORT INFORMATION
  Report Type: Spontaneous
  Country: US (occurrence: US)
  Receive Date: 20191001
  Receipt Date: 20191001
  Transmission Date: 20200122
  Serious: Yes (Disabling)
  Sender: FDA-Public Use
  Company Number: None

PATIENT
  Age: 21 Year
  Sex: Male
  Weight: 72 kg

DRUGS (1)
  1. PROPECIA [Suspect]
     Active Substance: FINASTERIDE
     Indication: ALOPECIA
     Dosage: ?          QUANTITY:1 TABLET(S);?
     Route: 048
     Dates: start: 20140901, end: 20140915

REACTIONS (9)
  - Libido decreased [None]
  - Amnesia [None]
  - Irritability [None]
  - Feeling abnormal [None]
  - Anxiety [None]
  - Genital hypoaesthesia [None]
  - Negative thoughts [None]
  - Sleep disorder [None]
  - Depression [None]

NARRATIVE: CASE EVENT DATE: 20140914
